FAERS Safety Report 13157339 (Version 2)
Quarter: 2017Q1

REPORT INFORMATION
  Report Type: Spontaneous
  Country: AU (occurrence: AU)
  Receive Date: 20170127
  Receipt Date: 20170227
  Transmission Date: 20170428
  Serious: Yes (Disabling)
  Sender: FDA-Public Use
  Company Number: AU-ROCHE-1884677

PATIENT
  Sex: Female

DRUGS (16)
  1. XOLAIR [Suspect]
     Active Substance: OMALIZUMAB
     Route: 058
     Dates: start: 20160506
  2. PREDNISOLONE. [Suspect]
     Active Substance: PREDNISOLONE
     Dosage: 3 MG, QD
     Route: 065
  3. FEXOFENADINE [Concomitant]
     Active Substance: FEXOFENADINE\FEXOFENADINE HYDROCHLORIDE
     Indication: PRODUCT USED FOR UNKNOWN INDICATION
     Dosage: 1 DF, QD
     Route: 065
  4. QUETIAPINE. [Concomitant]
     Active Substance: QUETIAPINE
     Indication: PRODUCT USED FOR UNKNOWN INDICATION
     Dosage: 0.5 DF, UNK
     Route: 005
  5. EDRONAX [Concomitant]
     Active Substance: REBOXETINE MESYLATE
     Indication: PRODUCT USED FOR UNKNOWN INDICATION
     Route: 065
  6. PREDNISOLONE. [Suspect]
     Active Substance: PREDNISOLONE
     Indication: PRODUCT USED FOR UNKNOWN INDICATION
     Route: 065
  7. PAROXETINE. [Concomitant]
     Active Substance: PAROXETINE
     Indication: PRODUCT USED FOR UNKNOWN INDICATION
     Route: 065
  8. MIRTAZAPINE. [Concomitant]
     Active Substance: MIRTAZAPINE
     Indication: URTICARIA
     Dosage: 1 DF, QHS
     Route: 065
  9. PREDNISOLONE. [Suspect]
     Active Substance: PREDNISOLONE
     Dosage: 5 MG, UNK
     Route: 065
  10. VALDOXAN [Concomitant]
     Active Substance: AGOMELATINE
     Indication: PRODUCT USED FOR UNKNOWN INDICATION
     Route: 065
  11. XOLAIR [Suspect]
     Active Substance: OMALIZUMAB
     Indication: CHRONIC SPONTANEOUS URTICARIA
     Dosage: MOST RECENT DOSE: 05/FEB/2016
     Route: 058
     Dates: start: 20150925
  12. MIRTAZAPINE. [Concomitant]
     Active Substance: MIRTAZAPINE
     Indication: PRODUCT USED FOR UNKNOWN INDICATION
     Dosage: 1 DF, QHS
     Route: 065
  13. XOLAIR [Suspect]
     Active Substance: OMALIZUMAB
     Route: 058
  14. CETIRIZINE [Concomitant]
     Active Substance: CETIRIZINE HYDROCHLORIDE
     Indication: PRODUCT USED FOR UNKNOWN INDICATION
     Dosage: 20 MG, QD
     Route: 065
  15. NOVASONE [Concomitant]
     Active Substance: MOMETASONE FUROATE
     Indication: PRODUCT USED FOR UNKNOWN INDICATION
     Dosage: 30 ML, PRN
     Route: 065
  16. FAMOTIDINE. [Concomitant]
     Active Substance: FAMOTIDINE
     Indication: PRODUCT USED FOR UNKNOWN INDICATION
     Dosage: 1 DF, BID
     Route: 065

REACTIONS (11)
  - Drug intolerance [Unknown]
  - Petechiae [Unknown]
  - Neuropathy peripheral [Unknown]
  - Vertebral osteophyte [Unknown]
  - Spinal osteoarthritis [Unknown]
  - Urticaria chronic [Unknown]
  - Hypoaesthesia [Unknown]
  - Rash macular [Unknown]
  - Purpura [Unknown]
  - Intervertebral disc degeneration [Unknown]
  - Paraesthesia [Unknown]

NARRATIVE: CASE EVENT DATE: 2016
